FAERS Safety Report 5703712-2 (Version None)
Quarter: 2008Q2

REPORT INFORMATION
  Report Type: 
  Country: None (occurrence: None)
  Receive Date: 20080413
  Receipt Date: 20080412
  Transmission Date: 20081010
  Serious: Yes (Hospitalization)
  Sender: FDA-Public Use
  Company Number: PHHO2006US03875

PATIENT
  Age: 60 Year
  Sex: Male

DRUGS (5)
  1. DEPO-MEDROL [Concomitant]
     Dates: start: 20060119, end: 20060119
  2. FOSAMAX [Concomitant]
     Dosage: UNK, QW
     Dates: start: 20050616, end: 20050623
  3. ZOLEDRONIC ACID VS ALEDRONATE [Suspect]
     Indication: OSTEOPOROSIS
     Dosage: 5MG PER YEAR
     Dates: start: 20050801
  4. VITAMIN D [Concomitant]
     Indication: OSTEOPOROSIS
  5. CALCIUM CARBONATE [Concomitant]
     Indication: OSTEOPOROSIS

REACTIONS (4)
  - DISEASE PROGRESSION [None]
  - KNEE ARTHROPLASTY [None]
  - OSTEOARTHRITIS [None]
  - OSTEONECROSIS [None]
